FAERS Safety Report 13809595 (Version 2)
Quarter: 2017Q3

REPORT INFORMATION
  Report Type: Report from Study
  Country: US (occurrence: US)
  Receive Date: 20170728
  Receipt Date: 20170729
  Transmission Date: 20171127
  Serious: No
  Sender: FDA-Public Use
  Company Number: US-AMGEN-USASL2017081715

PATIENT
  Age: 71 Year
  Sex: Female

DRUGS (1)
  1. REPATHA [Suspect]
     Active Substance: EVOLOCUMAB
     Indication: PRODUCT USED FOR UNKNOWN INDICATION
     Dosage: 420 MG, QMO
     Route: 065

REACTIONS (8)
  - Tremor [Unknown]
  - Pain [Unknown]
  - Neck pain [Unknown]
  - Decreased appetite [Unknown]
  - Pain in extremity [Unknown]
  - Back pain [Unknown]
  - Asthenia [Unknown]
  - Headache [Unknown]
